FAERS Safety Report 8777735 (Version 1)
Quarter: 2012Q4

REPORT INFORMATION
  Report Type: 
  Country: US (occurrence: US)
  Receive Date: 20120912
  Receipt Date: 20120912
  Transmission Date: 20130627
  Serious: Yes (Death, Hospitalization)
  Sender: FDA-Public Use
  Company Number: PHHY2009US071261

PATIENT
  Age: 61 Year
  Sex: Female

DRUGS (3)
  1. CICLOSPORIN [Suspect]
     Indication: ACUTE GRAFT VERSUS HOST DISEASE
  2. MYCOPHENOLATE MOFETIL [Suspect]
     Indication: ACUTE GRAFT VERSUS HOST DISEASE
  3. INFLIXIMAB [Suspect]
     Indication: ACUTE GRAFT VERSUS HOST DISEASE

REACTIONS (11)
  - Infection [Fatal]
  - Fall [Unknown]
  - Subdural haematoma [Unknown]
  - Sepsis [Unknown]
  - Drug resistance [Unknown]
  - Acute graft versus host disease [Unknown]
  - Cholestasis [Unknown]
  - Rash [Unknown]
  - Diarrhoea [Unknown]
  - Disease progression [Unknown]
  - No therapeutic response [None]
